FAERS Safety Report 7545722 (Version 2)
Quarter: 2025Q3

REPORT INFORMATION
  Report Type: Spontaneous
  Country: AU (occurrence: AU)
  Receive Date: 20100818
  Receipt Date: 20250814
  Transmission Date: 20251021
  Serious: Yes (Hospitalization)
  Sender: MERCK SHARP & DOHME LLC
  Company Number: AU-MERCK-1008USA01674

PATIENT
  Sex: Male

DRUGS (5)
  1. CANCIDAS [Suspect]
     Active Substance: CASPOFUNGIN ACETATE
     Indication: Aspergillus infection
  2. CIPROFLOXACIN [Suspect]
     Active Substance: CIPROFLOXACIN
     Indication: Aspergillus infection
  3. ITRACONAZOLE [Suspect]
     Active Substance: ITRACONAZOLE
     Indication: Aspergillus infection
     Route: 048
  4. POSACONAZOLE [Suspect]
     Active Substance: POSACONAZOLE
     Indication: Aspergillus infection
  5. VORICONAZOLE [Suspect]
     Active Substance: VORICONAZOLE
     Indication: Aspergillus infection
     Dosage: DOSE DESCRIPTION : 400 MG, QD?DAILY DOSE : 400 MILLIGRAM
     Route: 048

REACTIONS (4)
  - Drug ineffective [Unknown]
  - Hypocalcaemia [Unknown]
  - Hepatic enzyme increased [Unknown]
  - Hyponatraemia [Unknown]
